FAERS Safety Report 7485366-0 (Version None)
Quarter: 2011Q2

REPORT INFORMATION
  Report Type: 
  Country: None (occurrence: None)
  Receive Date: 20110517
  Receipt Date: 20110428
  Transmission Date: 20111010
  Serious: Yes (Hospitalization)
  Sender: FDA-Public Use
  Company Number: RU-US-EMD SERONO, INC.-7055913

PATIENT
  Sex: Female

DRUGS (1)
  1. GONAL-F [Suspect]
     Indication: OVULATION INDUCTION
     Route: 058
     Dates: start: 20100824, end: 20100902

REACTIONS (2)
  - ECTOPIC PREGNANCY [None]
  - OVARIAN HYPERSTIMULATION SYNDROME [None]
